FAERS Safety Report 16988789 (Version 1)
Quarter: 2019Q4

REPORT INFORMATION
  Report Type: Spontaneous
  Country: DE (occurrence: DE)
  Receive Date: 20191104
  Receipt Date: 20191104
  Transmission Date: 20200122
  Serious: Yes (Other)
  Sender: FDA-Public Use
  Company Number: DE-ASTRAZENECA-2019SF56208

PATIENT
  Sex: Female

DRUGS (1)
  1. ASCOTOP [Suspect]
     Active Substance: ZOLMITRIPTAN
     Indication: PRODUCT USED FOR UNKNOWN INDICATION
     Dosage: 5 MG, 1/WEEK
     Route: 045

REACTIONS (2)
  - Endometrial thickening [Unknown]
  - Endometrial hyperplasia [Unknown]
